FAERS Safety Report 7428599-1 (Version None)
Quarter: 2011Q2

REPORT INFORMATION
  Report Type: 
  Country: None (occurrence: None)
  Receive Date: 20110421
  Receipt Date: 20100128
  Transmission Date: 20111010
  Serious: No
  Sender: FDA-Public Use
  Company Number: US-BAYER-201012926NA

PATIENT
  Age: 17 Year
  Sex: Female

DRUGS (2)
  1. YASMIN [Suspect]
     Indication: CONTRACEPTION
     Dosage: UNK UNK, QD
  2. YASMIN [Suspect]
     Indication: ACNE

REACTIONS (1)
  - AMENORRHOEA [None]
